FAERS Safety Report 9021750 (Version 1)
Quarter: 2013Q1

REPORT INFORMATION
  Report Type: Spontaneous
  Country: US (occurrence: US)
  Receive Date: 20130119
  Receipt Date: 20130119
  Transmission Date: 20140127
  Serious: No
  Sender: FDA-Public Use
  Company Number: US-ALLERGAN-1206381US

PATIENT
  Age: 5 Year
  Sex: 0
  Weight: 14 kg

DRUGS (2)
  1. BOTOX? [Suspect]
     Indication: MUSCLE SPASTICITY
     Dosage: 90 UNITS, SINGLE
     Route: 030
     Dates: start: 20120501, end: 20120501
  2. BOTOX? [Suspect]
     Dosage: 30 UNITS, SINGLE
     Route: 030
     Dates: start: 20120501, end: 20120501

REACTIONS (3)
  - Injection site swelling [Unknown]
  - Injection site erythema [Unknown]
  - Injection site pain [Unknown]
